FAERS Safety Report 7602373-5 (Version None)
Quarter: 2011Q3

REPORT INFORMATION
  Report Type: 
  Country: None (occurrence: None)
  Receive Date: 20110712
  Receipt Date: 20110705
  Transmission Date: 20111222
  Serious: No
  Sender: FDA-Public Use
  Company Number: US-BIOGENIDEC-2011BI020261

PATIENT
  Age: 58 Year
  Sex: Female

DRUGS (4)
  1. TYSABRI [Suspect]
     Route: 042
     Dates: start: 20080118, end: 20101028
  2. TYSABRI [Suspect]
     Route: 042
     Dates: start: 20070515, end: 20071102
  3. TYSABRI [Suspect]
     Indication: MULTIPLE SCLEROSIS
     Route: 042
     Dates: start: 20110526, end: 20110526
  4. AVONEX [Concomitant]
     Indication: MULTIPLE SCLEROSIS
     Route: 030
     Dates: start: 20040324

REACTIONS (4)
  - MOBILITY DECREASED [None]
  - GENERAL SYMPTOM [None]
  - MENTAL IMPAIRMENT [None]
  - FEELING ABNORMAL [None]
